FAERS Safety Report 6826513-0 (Version None)
Quarter: 2010Q3

REPORT INFORMATION
  Report Type: 
  Country: None (occurrence: None)
  Receive Date: 20100709
  Receipt Date: 20100630
  Transmission Date: 20110219
  Serious: Yes (Other)
  Sender: FDA-Public Use
  Company Number: GB-TEVA-240191ISR

PATIENT

DRUGS (1)
  1. AMOXICILLIN [Suspect]

REACTIONS (5)
  - ASTHMA [None]
  - COUGH [None]
  - HYPERSENSITIVITY [None]
  - OCCUPATIONAL EXPOSURE TO DRUG [None]
  - WHEEZING [None]
